FAERS Safety Report 4326924-1 (Version None)
Quarter: 2004Q1

REPORT INFORMATION
  Report Type: 
  Country: None (occurrence: None)
  Receive Date: 20040330
  Receipt Date: 20040224
  Transmission Date: 20041129
  Serious: Yes (Hospitalization)
  Sender: FDA-Public Use
  Company Number: US-ROCHE-360037

PATIENT
  Age: 35 Year
  Sex: Male
  Weight: 60.3 kg

DRUGS (5)
  1. VALIUM [Suspect]
     Indication: ANXIETY
     Route: 048
     Dates: end: 20040127
  2. PREVACID [Concomitant]
     Dosage: 30MG ON.
     Route: 048
  3. UNKNOWN DRUG [Concomitant]
     Indication: PNEUMONIA
     Dosage: DRUG REPORTED AS PRACHRUM DS. 15 UNITS M, W, F.
     Route: 048
  4. AUGMENTIN [Concomitant]
     Indication: PNEUMONIA
     Route: 048
     Dates: end: 20040224
  5. CIPROFLOXACIN [Concomitant]
     Indication: PNEUMONIA
     Dosage: 400 MIN.
     Route: 048
     Dates: end: 20040224

REACTIONS (8)
  - ABNORMAL BEHAVIOUR [None]
  - COGNITIVE DISORDER [None]
  - CONFUSIONAL STATE [None]
  - DRUG ABUSER [None]
  - DRUG WITHDRAWAL SYNDROME [None]
  - HALLUCINATION [None]
  - MEMORY IMPAIRMENT [None]
  - PARANOIA [None]
